FAERS Safety Report 5525752-9 (Version None)
Quarter: 2007Q4

REPORT INFORMATION
  Report Type: 
  Country: None (occurrence: None)
  Receive Date: 20071126
  Receipt Date: 20071119
  Transmission Date: 20080405
  Serious: Yes (Disabling)
  Sender: FDA-Public Use
  Company Number: AU-ASTRAZENECA-2007AP06682

PATIENT
  Age: 60 Year
  Sex: Female
  Weight: 107 kg

DRUGS (13)
  1. TAMOXIFEN CITRATE [Suspect]
     Route: 048
     Dates: start: 20070701
  2. GENOX [Suspect]
     Indication: BREAST CANCER
  3. DUCENE [Concomitant]
     Indication: PANIC DISORDER
     Route: 048
  4. VYTORIN [Concomitant]
     Indication: BLOOD PRESSURE INCREASED
     Route: 048
  5. AVAPRO [Concomitant]
     Indication: BLOOD PRESSURE INCREASED
     Route: 048
  6. METFORMIN HCL [Concomitant]
     Indication: DIABETES MELLITUS
     Route: 048
  7. GLYADE [Concomitant]
     Indication: DIABETES MELLITUS
     Route: 048
  8. TALOHEXAL [Concomitant]
     Indication: DEPRESSION
     Route: 048
  9. MONODUR [Concomitant]
     Indication: BLOOD PRESSURE INCREASED
  10. MONODUR [Concomitant]
     Indication: HEART RATE IRREGULAR
  11. DIAFORMIN [Concomitant]
     Indication: DIABETES MELLITUS
     Route: 048
  12. ASTRIX [Concomitant]
     Indication: BLOOD DISORDER
  13. PROCHLORPERAZINE [Concomitant]
     Indication: NAUSEA

REACTIONS (1)
  - BLOOD GLUCOSE ABNORMAL [None]
